FAERS Safety Report 4536935-9 (Version None)
Quarter: 2004Q4

REPORT INFORMATION
  Report Type: 
  Country: None (occurrence: None)
  Receive Date: 20041220
  Receipt Date: 20041210
  Transmission Date: 20050328
  Serious: Yes (Hospitalization)
  Sender: FDA-Public Use
  Company Number: 2004-12-0417

PATIENT
  Age: 56 Year
  Sex: Female

DRUGS (2)
  1. CELESTONE SOLUSPAN [Suspect]
     Indication: CARPAL TUNNEL SYNDROME
     Dosage: 1 ML
     Dates: start: 20040527, end: 20040527
  2. ANALGESIC (NOS) [Concomitant]

REACTIONS (8)
  - ANAPHYLACTIC REACTION [None]
  - EYE ROLLING [None]
  - HYPOTONIA [None]
  - LOSS OF CONSCIOUSNESS [None]
  - MALAISE [None]
  - SYNCOPE VASOVAGAL [None]
  - URINARY INCONTINENCE [None]
  - VOMITING [None]
